FAERS Safety Report 8352321-8 (Version None)
Quarter: 2012Q2

REPORT INFORMATION
  Report Type: 
  Country: None (occurrence: None)
  Receive Date: 20120511
  Receipt Date: 20120508
  Transmission Date: 20120825
  Serious: Yes (Other)
  Sender: FDA-Public Use
  Company Number: US-AMGEN-USASP2011061068

PATIENT
  Age: 62 Year
  Sex: Male

DRUGS (2)
  1. ENBREL [Suspect]
     Indication: PSORIATIC ARTHROPATHY
     Dosage: 50 MG, QWK
     Dates: start: 20091109, end: 20110922
  2. ENBREL [Suspect]
     Indication: PSORIASIS

REACTIONS (6)
  - ANAPHYLACTIC REACTION [None]
  - URTICARIA [None]
  - PRURITUS GENERALISED [None]
  - PHARYNGEAL ERYTHEMA [None]
  - SWELLING [None]
  - RASH ERYTHEMATOUS [None]
